FAERS Safety Report 10461024 (Version 1)
Quarter: 2014Q3

REPORT INFORMATION
  Report Type: Spontaneous
  Country: US (occurrence: None)
  Receive Date: 20140917
  Receipt Date: 20140917
  Transmission Date: 20150326
  Serious: No
  Sender: FDA-Public Use
  Company Number: None

PATIENT
  Age: 17 Year
  Sex: Female
  Weight: 86 kg

DRUGS (2)
  1. LEVETIRACETAM. [Suspect]
     Active Substance: LEVETIRACETAM
     Indication: EPILEPSY
     Route: 048
     Dates: start: 201008, end: 201011
  2. LEVETIRACETAM. [Suspect]
     Active Substance: LEVETIRACETAM
     Indication: BRAIN NEOPLASM
     Route: 048
     Dates: start: 201008, end: 201011

REACTIONS (2)
  - Product substitution issue [None]
  - Therapeutic response decreased [None]

NARRATIVE: CASE EVENT DATE: 201008
